FAERS Safety Report 10100970 (Version 1)
Quarter: 2014Q2

REPORT INFORMATION
  Report Type: Spontaneous
  Country: US (occurrence: US)
  Receive Date: 20140424
  Receipt Date: 20140424
  Transmission Date: 20141212
  Serious: No
  Sender: FDA-Public Use
  Company Number: US-009507513-1404USA009127

PATIENT
  Age: 62 Year
  Sex: Male

DRUGS (5)
  1. PEGINTRON [Suspect]
     Indication: HEPATITIS C
     Dosage: 150 MCG/0.5 ML
     Route: 058
     Dates: start: 20140411
  2. REBETOL [Suspect]
     Indication: HEPATITIS C
     Dosage: 1 DF, BID
     Route: 048
     Dates: start: 20140411
  3. SOVALDI [Concomitant]
     Dosage: 1 DF, QD
  4. VITAMINS (UNSPECIFIED) [Concomitant]
     Dosage: 1 DF, QD
     Route: 048
  5. OMEGA-3 MARINE TRIGLYCERIDES [Concomitant]
     Dosage: 3 DF, UNK
     Route: 048

REACTIONS (8)
  - Influenza like illness [Unknown]
  - Chills [Unknown]
  - Back pain [Unknown]
  - Myalgia [Unknown]
  - Insomnia [Unknown]
  - Headache [Unknown]
  - Burning sensation [Unknown]
  - Pyrexia [Unknown]
